FAERS Safety Report 17957243 (Version 6)
Quarter: 2020Q4

REPORT INFORMATION
  Report Type: Spontaneous
  Country: JP (occurrence: JP)
  Receive Date: 20200629
  Receipt Date: 20201224
  Transmission Date: 20210113
  Serious: Yes (Hospitalization, Other)
  Sender: FDA-Public Use
  Company Number: JP-BRISTOL-MYERS SQUIBB COMPANY-BMS-2020-050716

PATIENT
  Age: 62 Year
  Sex: Male
  Weight: 57 kg

DRUGS (9)
  1. OPDIVO [Suspect]
     Active Substance: NIVOLUMAB
     Indication: METASTATIC RENAL CELL CARCINOMA
     Dosage: 240 MILLIGRAM
     Route: 041
     Dates: start: 20191202
  2. YERVOY [Suspect]
     Active Substance: IPILIMUMAB
     Indication: METASTATIC RENAL CELL CARCINOMA
     Dosage: ONE TIME DOSE
     Route: 041
     Dates: start: 20191202
  3. ALENDRONATE [Concomitant]
     Active Substance: ALENDRONATE SODIUM
     Indication: PRODUCT USED FOR UNKNOWN INDICATION
     Dosage: 35 MILLIGRAM, QWK
     Route: 048
  4. HUMULIN R [Concomitant]
     Active Substance: INSULIN HUMAN
     Indication: PRODUCT USED FOR UNKNOWN INDICATION
     Dosage: PRN
     Route: 065
  5. TAKECAB [Concomitant]
     Active Substance: VONOPRAZAN FUMARATE
     Indication: PROPHYLAXIS
     Dosage: 20 MILLIGRAM, QD
     Route: 048
     Dates: start: 20200222
  6. OPDIVO [Suspect]
     Active Substance: NIVOLUMAB
     Dosage: 240 MILLIGRAM
     Route: 041
     Dates: start: 20200316, end: 20200507
  7. PREDNISOLONE. [Concomitant]
     Active Substance: PREDNISOLONE
     Indication: PROPHYLAXIS
     Dosage: 3.5 MILLIGRAM, Q8H
     Route: 048
     Dates: start: 20200222
  8. BISONO [Concomitant]
     Active Substance: BISOPROLOL
     Indication: PROPHYLAXIS
     Dosage: 8 MILLIGRAM, QD
     Route: 062
     Dates: start: 20200527
  9. BAKTAR [Concomitant]
     Active Substance: SULFAMETHOXAZOLE\TRIMETHOPRIM
     Indication: PROPHYLAXIS
     Dosage: 1 DOSAGE FORM
     Route: 048
     Dates: start: 20200222

REACTIONS (6)
  - Immune thrombocytopenia [Unknown]
  - Immune-mediated cytopenia [Recovered/Resolved]
  - Vomiting [Unknown]
  - Immune-mediated enterocolitis [Recovered/Resolved]
  - Nausea [Unknown]
  - Hypophagia [Unknown]

NARRATIVE: CASE EVENT DATE: 20200507
